FAERS Safety Report 8028763-7 (Version None)
Quarter: 2012Q1

REPORT INFORMATION
  Report Type: 
  Country: None (occurrence: None)
  Receive Date: 20120106
  Receipt Date: 20111228
  Transmission Date: 20120608
  Serious: Yes (Hospitalization, Disabling)
  Sender: FDA-Public Use
  Company Number: US-MERCK-1104USA02990

PATIENT
  Age: 33 Year
  Sex: Male
  Weight: 112 kg

DRUGS (3)
  1. PROPECIA [Suspect]
     Indication: ANDROGENETIC ALOPECIA
     Route: 048
     Dates: start: 20060101, end: 20080101
  2. PROPECIA [Suspect]
     Route: 048
     Dates: start: 20110101
  3. PROPECIA [Suspect]
     Route: 048
     Dates: start: 20070106

REACTIONS (25)
  - ERECTILE DYSFUNCTION [None]
  - INCORRECT DOSE ADMINISTERED [None]
  - DEPRESSION [None]
  - PERITONSILLAR ABSCESS [None]
  - EMOTIONAL DISTRESS [None]
  - TRANSIENT ISCHAEMIC ATTACK [None]
  - SLUGGISHNESS [None]
  - AMNESIA [None]
  - NECK PAIN [None]
  - CARDIAC MURMUR [None]
  - FATIGUE [None]
  - EXOSTOSIS [None]
  - ABDOMINAL DISCOMFORT [None]
  - RHINITIS ALLERGIC [None]
  - LIGAMENT SPRAIN [None]
  - ANXIETY [None]
  - BACK PAIN [None]
  - ADVERSE DRUG REACTION [None]
  - DIZZINESS [None]
  - MALAISE [None]
  - DISTURBANCE IN ATTENTION [None]
  - PALPITATIONS [None]
  - HEADACHE [None]
  - ANDROGEN DEFICIENCY [None]
  - SPINAL DISORDER [None]
